FAERS Safety Report 7952692-8 (Version None)
Quarter: 2011Q4

REPORT INFORMATION
  Report Type: 
  Country: None (occurrence: None)
  Receive Date: 20111201
  Receipt Date: 20111122
  Transmission Date: 20120403
  Serious: Yes (Hospitalization)
  Sender: FDA-Public Use
  Company Number: FR-BAXTER-2010BH024854

PATIENT
  Age: 93 Year
  Sex: Female
  Weight: 49 kg

DRUGS (32)
  1. FEIBA [Suspect]
     Indication: FACTOR VIII DEFICIENCY
     Route: 065
     Dates: start: 20091201, end: 20091218
  2. LORAZEPAM [Concomitant]
     Indication: SLEEP DISORDER
     Route: 048
  3. ACETAMINOPHEN [Concomitant]
     Indication: PAIN
     Route: 048
     Dates: start: 20091218
  4. CACIT D3 [Concomitant]
     Indication: FACTOR VIII INHIBITION
     Route: 048
     Dates: start: 20091201, end: 20091229
  5. PREDNISONE TAB [Concomitant]
     Indication: FACTOR VIII INHIBITION
     Route: 048
     Dates: start: 20091201, end: 20100113
  6. METHYLPREDNISOLONE [Concomitant]
     Indication: PREMEDICATION
     Route: 042
     Dates: start: 20091203, end: 20100113
  7. FEIBA [Suspect]
     Route: 065
     Dates: start: 20100111, end: 20100113
  8. FEIBA [Suspect]
     Route: 065
     Dates: start: 20091201, end: 20091218
  9. FEIBA [Suspect]
     Route: 065
     Dates: start: 20091201, end: 20091218
  10. FEIBA [Suspect]
     Route: 065
     Dates: start: 20100111, end: 20100113
  11. KAYEXALATE [Concomitant]
     Indication: HYPERKALAEMIA
     Route: 048
     Dates: start: 20091202, end: 20091202
  12. ACETAMINOPHEN [Concomitant]
     Indication: PREMEDICATION
     Route: 048
     Dates: start: 20091203, end: 20100113
  13. DUPHALAC /NET/ [Concomitant]
     Indication: CONSTIPATION
     Route: 048
     Dates: start: 20091220, end: 20091220
  14. FEIBA [Suspect]
     Route: 065
     Dates: start: 20091222, end: 20091223
  15. RED BLOOD CELLS [Concomitant]
     Indication: ANAEMIA
     Route: 042
     Dates: start: 20091201, end: 20091211
  16. RISPERDAL [Concomitant]
     Indication: DEPRESSION
     Route: 048
  17. RITUXIMAB [Concomitant]
     Indication: FACTOR VIII INHIBITION
     Route: 042
     Dates: start: 20091203, end: 20100113
  18. TRAMADOL HCL [Concomitant]
     Indication: PAIN
     Route: 048
     Dates: start: 20091130, end: 20091214
  19. DEXCHLORPHENIRAMINE MALEATE [Concomitant]
     Indication: PREMEDICATION
     Dates: start: 20091203, end: 20100113
  20. PANTOPRAZOLE SODIUM [Concomitant]
     Indication: PROPHYLAXIS
     Route: 048
     Dates: start: 20091209
  21. ACETAMINOPHEN [Concomitant]
     Route: 048
     Dates: start: 20091219, end: 20091220
  22. FEIBA [Suspect]
     Indication: FACTOR VIII INHIBITION
     Route: 065
     Dates: start: 20091201, end: 20091218
  23. FEIBA [Suspect]
     Route: 065
     Dates: start: 20091201, end: 20091218
  24. FEIBA [Suspect]
     Route: 065
     Dates: start: 20091219, end: 20091219
  25. FEIBA [Suspect]
     Route: 065
     Dates: start: 20091222, end: 20091223
  26. STABLON [Concomitant]
     Indication: DEPRESSION
     Route: 048
     Dates: start: 20091201
  27. ACTONEL [Concomitant]
     Indication: FACTOR VIII INHIBITION
     Route: 048
     Dates: start: 20091205, end: 20091229
  28. TRANXENE [Concomitant]
     Indication: AGITATION
     Route: 048
     Dates: start: 20091209, end: 20100113
  29. FEIBA [Suspect]
     Route: 065
     Dates: start: 20091201, end: 20091218
  30. FEIBA [Suspect]
     Route: 065
     Dates: start: 20091219, end: 20091219
  31. ROCEPHIN [Concomitant]
     Indication: INFECTION PROPHYLAXIS
     Route: 042
     Dates: start: 20091101, end: 20091202
  32. LASIX [Concomitant]
     Indication: TRANSFUSION
     Route: 042
     Dates: start: 20091201, end: 20091201

REACTIONS (5)
  - LEUKOCYTOSIS [None]
  - HIP FRACTURE [None]
  - DEVICE RELATED INFECTION [None]
  - FALL [None]
  - ENTEROBACTER INFECTION [None]
